FAERS Safety Report 5932729-8 (Version None)
Quarter: 2008Q4

REPORT INFORMATION
  Report Type: 
  Country: None (occurrence: None)
  Receive Date: 20081028
  Receipt Date: 20081014
  Transmission Date: 20090506
  Serious: Yes (Other)
  Sender: FDA-Public Use
  Company Number: CA-ELI_LILLY_AND_COMPANY-CA200810003582

PATIENT
  Age: 67 Year
  Sex: Female
  Weight: 50.794 kg

DRUGS (2)
  1. FORTEO [Suspect]
     Indication: OSTEOPOROSIS
     Dosage: 20 UG, DAILY (1/D)
     Route: 058
     Dates: start: 20080129
  2. PROPRANOLOL [Concomitant]

REACTIONS (7)
  - DECREASED APPETITE [None]
  - MUSCLE SPASMS [None]
  - MUSCULAR WEAKNESS [None]
  - PSORIASIS [None]
  - SCAB [None]
  - SKIN CANCER [None]
  - WEIGHT DECREASED [None]
